FAERS Safety Report 5228521-2 (Version None)
Quarter: 2007Q1

REPORT INFORMATION
  Report Type: 
  Country: None (occurrence: None)
  Receive Date: 20070205
  Receipt Date: 20070125
  Transmission Date: 20070707
  Serious: Yes (Hospitalization)
  Sender: FDA-Public Use
  Company Number: FR-AVENTIS-200710335FR

PATIENT
  Age: 60 Year
  Sex: Male

DRUGS (11)
  1. LASIX [Suspect]
     Route: 048
     Dates: start: 20061116, end: 20061120
  2. APROVEL [Suspect]
     Route: 048
     Dates: end: 20061116
  3. GLUCOPHAGE [Suspect]
     Indication: DIABETES MELLITUS
     Route: 048
     Dates: end: 20061116
  4. SEROPRAM [Suspect]
     Route: 048
  5. ZYLORIC [Concomitant]
     Indication: GOUT
     Route: 048
     Dates: end: 20061116
  6. LEXOMIL [Concomitant]
     Indication: ANXIETY
     Route: 048
     Dates: start: 20061116, end: 20061116
  7. EUPANTOL                           /01263201/ [Concomitant]
  8. FLECAINIDE ACETATE [Concomitant]
  9. PERFALGAN [Concomitant]
  10. MEPRONIZINE                        /00789201/ [Concomitant]
  11. PREVISCAN                          /00789001/ [Concomitant]

REACTIONS (5)
  - DRUG INTERACTION [None]
  - HYPERKALAEMIA [None]
  - HYPONATRAEMIA [None]
  - LACTIC ACIDOSIS [None]
  - RENAL FAILURE ACUTE [None]
